FAERS Safety Report 9432599 (Version 3)
Quarter: 2013Q4

REPORT INFORMATION
  Report Type: Spontaneous
  Country: US (occurrence: US)
  Receive Date: 20130731
  Receipt Date: 20131010
  Transmission Date: 20140711
  Serious: Yes (Other)
  Sender: FDA-Public Use
  Company Number: US-PFIZER INC-2013218471

PATIENT
  Age: 42 Year
  Sex: Female
  Weight: 108 kg

DRUGS (2)
  1. PREMARIN [Suspect]
     Indication: MENOPAUSAL SYMPTOMS
     Dosage: 0.625 MG, DAILY
     Dates: start: 2000, end: 2007
  2. PREMARIN [Suspect]
     Indication: HOT FLUSH

REACTIONS (9)
  - Breast cyst [Not Recovered/Not Resolved]
  - Fibrocystic breast disease [Unknown]
  - Breast pain [Not Recovered/Not Resolved]
  - Dyspnoea [Not Recovered/Not Resolved]
  - Odynophagia [Not Recovered/Not Resolved]
  - Pain [Unknown]
  - Lipoma [Unknown]
  - Breast mass [Unknown]
  - Breast tenderness [Unknown]
